FAERS Safety Report 9195703 (Version 1)
Quarter: 2013Q1

REPORT INFORMATION
  Report Type: Spontaneous
  Country: US (occurrence: None)
  Receive Date: 20130325
  Receipt Date: 20130325
  Transmission Date: 20140127
  Serious: Yes (Other)
  Sender: FDA-Public Use
  Company Number: None

PATIENT
  Age: 78 Year
  Sex: Male

DRUGS (2)
  1. ELIGARD [Suspect]
  2. LUPRON [Concomitant]

REACTIONS (6)
  - Injection site mass [None]
  - Bone pain [None]
  - Myalgia [None]
  - Fatigue [None]
  - Asthenia [None]
  - Liver function test abnormal [None]
